FAERS Safety Report 21834212 (Version 3)
Quarter: 2024Q4

REPORT INFORMATION
  Report Type: Spontaneous
  Country: US (occurrence: US)
  Receive Date: 20230108
  Receipt Date: 20241017
  Transmission Date: 20250115
  Serious: No
  Sender: ROCHE
  Company Number: US-ROCHE-3158345

PATIENT
  Sex: Male

DRUGS (5)
  1. HEMLIBRA [Suspect]
     Active Substance: EMICIZUMAB-KXWH
     Indication: Factor VIII deficiency
     Dosage: (STRENGTH: 150 MG/ML)
     Route: 058
     Dates: start: 20210527
  2. HEMLIBRA [Suspect]
     Active Substance: EMICIZUMAB-KXWH
     Dosage: (STRENGTH: 60 MG/0.4 ML)
     Route: 058
     Dates: start: 20210527
  3. HEMLIBRA [Suspect]
     Active Substance: EMICIZUMAB-KXWH
     Dosage: (STRENGTH: 150 MG/ML)
     Route: 058
     Dates: start: 20220215
  4. HEMLIBRA [Suspect]
     Active Substance: EMICIZUMAB-KXWH
     Dosage: (STRENGTH: 60 MG/0.4 ML)
     Route: 058
     Dates: start: 20220215
  5. ADVATE [Concomitant]
     Active Substance: ANTIHEMOPHILIC FACTOR, HUMAN RECOMBINANT
     Route: 065

REACTIONS (1)
  - Haemorrhage [Not Recovered/Not Resolved]
